FAERS Safety Report 8269230-5 (Version None)
Quarter: 2012Q2

REPORT INFORMATION
  Report Type: 
  Country: None (occurrence: None)
  Receive Date: 20120409
  Receipt Date: 20120403
  Transmission Date: 20120825
  Serious: Yes (Hospitalization, Congenital Anomaly, Other)
  Sender: FDA-Public Use
  Company Number: US-PFIZER INC-2012068268

PATIENT
  Sex: Female
  Weight: 3.2 kg

DRUGS (1)
  1. ZOLOFT [Suspect]
     Indication: DEPRESSION
     Dosage: UNK
     Route: 064

REACTIONS (10)
  - ATRIAL SEPTAL DEFECT [None]
  - CONGENITAL AORTIC STENOSIS [None]
  - RESPIRATORY DISTRESS [None]
  - PATENT DUCTUS ARTERIOSUS [None]
  - CARDIOMEGALY [None]
  - MATERNAL EXPOSURE TIMING UNSPECIFIED [None]
  - CYANOSIS NEONATAL [None]
  - TRANSPOSITION OF THE GREAT VESSELS [None]
  - TRICUSPID VALVE INCOMPETENCE [None]
  - METABOLIC ACIDOSIS [None]
